FAERS Safety Report 18378351 (Version 2)
Quarter: 2020Q4

REPORT INFORMATION
  Report Type: Spontaneous
  Country: US (occurrence: US)
  Receive Date: 20201013
  Receipt Date: 20201214
  Transmission Date: 20210114
  Serious: Yes (Other)
  Sender: FDA-Public Use
  Company Number: US-VERTEX PHARMACEUTICALS-2020-013552

PATIENT
  Age: 30 Year
  Sex: Female
  Weight: 44 kg

DRUGS (9)
  1. TRIKAFTA [Suspect]
     Active Substance: ELEXACAFTOR\IVACAFTOR\TEZACAFTOR
     Indication: CYSTIC FIBROSIS
     Dosage: 2 ORANGE TABS AM EVERY OTHER DAY ALTERNATING WITH 1 BLUE TAB AM EVERY OTHER DAY, NO PM DOSE
     Route: 048
     Dates: start: 20200312, end: 20201030
  2. VITAMIN C [Concomitant]
     Active Substance: ASCORBIC ACID
     Dosage: 1000 MILLIGRAM
  3. DULCOLAX STOOL SOFTENER [Concomitant]
     Active Substance: DOCUSATE SODIUM
  4. VITAMIN D3 [Concomitant]
     Active Substance: CHOLECALCIFEROL
     Dosage: 10(400)/ ML DROPS
  5. TACROLIMUS. [Concomitant]
     Active Substance: TACROLIMUS
     Dosage: 0.5 MILLIGRAM
  6. COLLAGEN [Concomitant]
     Active Substance: COLLAGEN
     Dosage: 125-740MG
  7. ZYRTEC [Concomitant]
     Active Substance: CETIRIZINE HYDROCHLORIDE
     Dosage: 10 MILLIGRAM
  8. BIOTIN [Concomitant]
     Active Substance: BIOTIN
     Dosage: 1 MILLIGRAM
  9. SENNA [SENNA ALEXANDRINA LEAF] [Concomitant]
     Dosage: 8.6MG-50MG TABLET

REACTIONS (5)
  - Anxiety [Unknown]
  - Weight increased [Unknown]
  - Increased appetite [Unknown]
  - Constipation [Not Recovered/Not Resolved]
  - Distal intestinal obstruction syndrome [Recovering/Resolving]

NARRATIVE: CASE EVENT DATE: 2020
